FAERS Safety Report 22268371 (Version 1)
Quarter: 2023Q2

REPORT INFORMATION
  Report Type: Spontaneous
  Country: US (occurrence: US)
  Receive Date: 20230430
  Receipt Date: 20230430
  Transmission Date: 20230721
  Serious: No
  Sender: FDA-Public Use
  Company Number: US-SA-SAC20230425000323

PATIENT
  Age: 77 Year
  Sex: Female
  Weight: 78.9 kg

DRUGS (8)
  1. DUPIXENT [Suspect]
     Active Substance: DUPILUMAB
     Indication: Dermatitis atopic
     Dosage: 300 MG, QOW
     Route: 058
     Dates: start: 20220328, end: 20230203
  2. BETAMETHASONE DIPROPIONATE [Concomitant]
     Active Substance: BETAMETHASONE DIPROPIONATE
     Dosage: 0.05 %
     Dates: start: 20210907
  3. MONTELUKAST SODIUM [Concomitant]
     Active Substance: MONTELUKAST SODIUM
     Dosage: 10 MG
     Route: 048
     Dates: start: 20210907
  4. ESTRADIOL [Concomitant]
     Active Substance: ESTRADIOL
     Dosage: 0.1 MG/G
     Route: 067
     Dates: start: 20210604
  5. MELOXICAM [Concomitant]
     Active Substance: MELOXICAM
     Dosage: 15 MG
     Route: 048
     Dates: start: 20210604
  6. NEXIUM I.V. [Concomitant]
     Active Substance: ESOMEPRAZOLE SODIUM
     Dosage: 40 MG
     Route: 048
     Dates: start: 20210907
  7. CRESTOR [Concomitant]
     Active Substance: ROSUVASTATIN CALCIUM
     Dosage: 10 MG
     Route: 048
     Dates: start: 20210907
  8. MYRBETRIQ [Concomitant]
     Active Substance: MIRABEGRON
     Dosage: 50 MG
     Route: 048
     Dates: start: 20210907

REACTIONS (1)
  - Rash [Recovered/Resolved]

NARRATIVE: CASE EVENT DATE: 20230203
